FAERS Safety Report 8172811 (Version 8)
Quarter: 2014Q1

REPORT INFORMATION
  Report Type: Spontaneous
  Country: US (occurrence: US)
  Receive Date: 20111007
  Receipt Date: 20140110
  Transmission Date: 20141002
  Serious: Yes (Hospitalization)
  Sender: FDA-Public Use
  Company Number: US-GLAXOSMITHKLINE-B0753798A

PATIENT
  Age: 48 Year
  Sex: Male
  Weight: 70.5 kg

DRUGS (10)
  1. AVANDIA [Suspect]
     Indication: DIABETES MELLITUS
     Dosage: 4MG PER DAY
     Route: 048
     Dates: start: 200501, end: 200605
  2. SULFASALAZINE [Concomitant]
  3. PROPOXYPHENE [Concomitant]
  4. ISONIAZID [Concomitant]
  5. TRAMADOL [Concomitant]
  6. METFORMIN [Concomitant]
  7. LIPITOR [Concomitant]
  8. PROMETHAZINE [Concomitant]
  9. SINGULAIR [Concomitant]
  10. ALEVE [Concomitant]

REACTIONS (9)
  - Myocardial infarction [Not Recovered/Not Resolved]
  - Cerebrovascular accident [Unknown]
  - Cardiac failure congestive [Unknown]
  - Ischaemic cardiomyopathy [Unknown]
  - Cardiac disorder [Unknown]
  - Anxiety [Unknown]
  - Depression [Unknown]
  - Pain [Unknown]
  - Arrhythmia [Unknown]
